FAERS Safety Report 5940505-5 (Version None)
Quarter: 2008Q4

REPORT INFORMATION
  Report Type: 
  Country: None (occurrence: None)
  Receive Date: 20081104
  Receipt Date: 20081027
  Transmission Date: 20090506
  Serious: Yes (Hospitalization)
  Sender: FDA-Public Use
  Company Number: FR-BRISTOL-MYERS SQUIBB COMPANY-14386858

PATIENT
  Age: 1 Day
  Sex: Male
  Weight: 4 kg

DRUGS (2)
  1. ABILIFY [Suspect]
     Route: 064
  2. FLUOXETINE [Suspect]
     Route: 064

REACTIONS (2)
  - DRUG WITHDRAWAL SYNDROME NEONATAL [None]
  - PREGNANCY [None]
